FAERS Safety Report 10070157 (Version 1)
Quarter: 2014Q2

REPORT INFORMATION
  Report Type: Report from Study
  Country: RU (occurrence: RU)
  Receive Date: 20140410
  Receipt Date: 20140410
  Transmission Date: 20141212
  Serious: Yes (Hospitalization)
  Sender: FDA-Public Use
  Company Number: RU-ROCHE-1375670

PATIENT
  Age: 26 Year
  Sex: Female
  Weight: 73 kg

DRUGS (2)
  1. PEG-INTERFERON ALFA 2A [Suspect]
     Indication: CHRONIC HEPATITIS C
     Dosage: DATE OF LAST DOSE PRIOR TO SAE 14/MAR/2014
     Route: 059
     Dates: start: 20130621, end: 20140321
  2. RIBAVIRIN [Suspect]
     Indication: CHRONIC HEPATITIS C
     Route: 048
     Dates: start: 20130621, end: 20140321

REACTIONS (1)
  - Myocarditis [Recovering/Resolving]
